FAERS Safety Report 10527824 (Version 1)
Quarter: 2014Q4

REPORT INFORMATION
  Report Type: Report from Study
  Country: AR (occurrence: AR)
  Receive Date: 20141020
  Receipt Date: 20141020
  Transmission Date: 20150528
  Serious: Yes (Death, Disabling)
  Sender: FDA-Public Use
  Company Number: AR-ABBVIE-14K-007-1296965-00

PATIENT
  Age: 63 Year
  Sex: Male

DRUGS (1)
  1. HUMIRA [Suspect]
     Active Substance: ADALIMUMAB
     Indication: HYPERPARATHYROIDISM SECONDARY
     Route: 065
     Dates: start: 20110101, end: 20140715

REACTIONS (3)
  - Myocardial infarction [Fatal]
  - Hip fracture [Unknown]
  - Sepsis [Fatal]

NARRATIVE: CASE EVENT DATE: 20141006
